FAERS Safety Report 14120359 (Version 2)
Quarter: 2018Q1

REPORT INFORMATION
  Report Type: Spontaneous
  Country: FR (occurrence: FR)
  Receive Date: 20171024
  Receipt Date: 20180205
  Transmission Date: 20180508
  Serious: Yes (Other)
  Sender: FDA-Public Use
  Company Number: FR-MERCK KGAA-2031279

PATIENT
  Age: 23 Year
  Sex: Female

DRUGS (2)
  1. TEMERIT [Concomitant]
     Active Substance: NEBIVOLOL
  2. NOVOTHYROX [Suspect]
     Active Substance: LEVOTHYROXINE SODIUM
     Indication: HYPOTHYROIDISM
     Dates: start: 201704

REACTIONS (22)
  - Throat tightness [Recovered/Resolved]
  - Blood pressure increased [Recovered/Resolved]
  - Vulvovaginal mycotic infection [Recovered/Resolved]
  - Pain in extremity [Recovered/Resolved]
  - Blepharospasm [Recovered/Resolved]
  - Tooth abscess [Recovered/Resolved]
  - Malaise [Recovered/Resolved]
  - Balance disorder [Recovered/Resolved]
  - Cardiovascular disorder [Recovered/Resolved]
  - Sleep disorder [Recovered/Resolved]
  - Thyroid function test abnormal [None]
  - Asthenia [Recovered/Resolved]
  - Skin discomfort [Recovered/Resolved]
  - Bone pain [Recovered/Resolved]
  - Nervousness [Recovered/Resolved]
  - Fatigue [Recovered/Resolved]
  - Limb discomfort [Recovered/Resolved]
  - Dyspnoea [Recovered/Resolved]
  - Arthralgia [Recovered/Resolved]
  - Hot flush [Recovered/Resolved]
  - Peripheral swelling [Recovered/Resolved]
  - Heart sounds abnormal [Recovered/Resolved]

NARRATIVE: CASE EVENT DATE: 2017
